FAERS Safety Report 4971296-2 (Version None)
Quarter: 2006Q2

REPORT INFORMATION
  Report Type: 
  Country: None (occurrence: None)
  Receive Date: 20060413
  Receipt Date: 20030627
  Transmission Date: 20061013
  Serious: Yes (Hospitalization)
  Sender: FDA-Public Use
  Company Number: CA-GILEAD-2003-05704

PATIENT
  Sex: Male
  Weight: 88.53 kg

DRUGS (12)
  1. VIREAD [Suspect]
     Indication: HIV INFECTION
     Route: 048
     Dates: start: 20020412, end: 20030612
  2. VALDECOXIB [Suspect]
     Indication: OSTEOARTHRITIS
     Dates: end: 20030612
  3. DIDANOSINE [Suspect]
     Indication: HIV INFECTION
  4. 3TC [Concomitant]
     Indication: HIV INFECTION
  5. ABACAVIR [Concomitant]
     Indication: HIV INFECTION
  6. NEVIRAPINE [Concomitant]
     Indication: HIV INFECTION
  7. SAQUINAVIR [Concomitant]
     Indication: HIV INFECTION
  8. KALETRA [Concomitant]
     Indication: HIV INFECTION
  9. VENLAFAXINE [Concomitant]
     Indication: DEPRESSION
     Dates: end: 20030612
  10. GABAPENTIN [Concomitant]
     Indication: NEUROPATHY PERIPHERAL
     Dates: end: 20030612
  11. OLANZAPINE [Concomitant]
     Indication: AFFECTIVE DISORDER
     Dates: end: 20030612
  12. FENOFIBRATE [Concomitant]
     Indication: HYPERLIPIDAEMIA
     Dates: end: 20030612

REACTIONS (3)
  - NEPHROTIC SYNDROME [None]
  - PANCREATITIS [None]
  - RENAL FAILURE ACUTE [None]
